FAERS Safety Report 22600874 (Version 1)
Quarter: 2023Q2

REPORT INFORMATION
  Report Type: Spontaneous
  Country: US (occurrence: US)
  Receive Date: 20230614
  Receipt Date: 20230614
  Transmission Date: 20230722
  Serious: Yes (Death)
  Sender: FDA-Public Use
  Company Number: US-AMGEN-USASP2023099154

PATIENT

DRUGS (14)
  1. TRASTUZUMAB [Suspect]
     Active Substance: TRASTUZUMAB
     Indication: Adenocarcinoma gastric
     Dosage: UNK
     Route: 065
  2. CAPECITABINE;CISPLATIN;EPIRUBICIN [Concomitant]
     Indication: Adenocarcinoma gastric
     Dosage: UNK
     Route: 065
  3. CISPLATIN;EPIRUBICIN;FLUOROURACIL [Concomitant]
     Indication: Adenocarcinoma gastric
     Dosage: UNK
     Route: 065
  4. FLUOROURACIL\LEUCOVORIN CALCIUM\OXALIPLATIN [Concomitant]
     Active Substance: FLUOROURACIL\LEUCOVORIN CALCIUM\OXALIPLATIN
     Indication: Adenocarcinoma gastric
     Dosage: UNK
     Route: 065
  5. CISPLATIN;DOCETAXEL;FLUOROURACIL [Concomitant]
     Indication: Adenocarcinoma gastric
     Dosage: UNK
     Route: 065
  6. Docetaxel;Fluorouracil;Oxaliplatin [Concomitant]
     Indication: Adenocarcinoma gastric
     Dosage: UNK
     Route: 065
  7. CISPLATIN\FLUOROURACIL [Concomitant]
     Active Substance: CISPLATIN\FLUOROURACIL
     Indication: Adenocarcinoma gastric
     Dosage: UNK
     Route: 065
  8. ETOPOSIDE [Concomitant]
     Active Substance: ETOPOSIDE
     Indication: Adenocarcinoma gastric
     Dosage: UNK
     Route: 065
  9. PLATINUM [Concomitant]
     Active Substance: PLATINUM
     Indication: Adenocarcinoma gastric
     Dosage: UNK
     Route: 065
  10. CARBOPLATIN\PACLITAXEL [Concomitant]
     Active Substance: CARBOPLATIN\PACLITAXEL
     Indication: Adenocarcinoma gastric
     Dosage: UNK
     Route: 065
  11. DOCETAXEL [Concomitant]
     Active Substance: DOCETAXEL
     Indication: Adenocarcinoma gastric
     Dosage: UNK
     Route: 065
  12. LEUCOVORIN [Concomitant]
     Active Substance: LEUCOVORIN
     Indication: Adenocarcinoma gastric
     Dosage: UNK
  13. OXALIPLATIN [Concomitant]
     Active Substance: OXALIPLATIN
     Indication: Adenocarcinoma gastric
     Dosage: UNK
  14. FLUOROURACIL [Concomitant]
     Active Substance: FLUOROURACIL
     Indication: Adenocarcinoma gastric
     Dosage: UNK

REACTIONS (2)
  - Death [Fatal]
  - Therapeutic product effect incomplete [Unknown]
